FAERS Safety Report 7341719-2 (Version None)
Quarter: 2011Q1

REPORT INFORMATION
  Report Type: 
  Country: None (occurrence: None)
  Receive Date: 20110309
  Receipt Date: 20100923
  Transmission Date: 20110831
  Serious: Yes (Death, Other)
  Sender: FDA-Public Use
  Company Number: US-BAYER-201041820NA

PATIENT
  Sex: Male
  Weight: 86 kg

DRUGS (19)
  1. LEVAQUIN [Concomitant]
     Dosage: 500 MG, QD
     Route: 048
  2. LISINOPRIL [Concomitant]
     Dosage: 10 MG, QD
     Route: 048
  3. ZOCOR [Concomitant]
     Dosage: 40 MG, QD
     Route: 048
  4. AMICAR [Concomitant]
     Dosage: 40 MG, UNK
     Route: 042
     Dates: start: 20070807, end: 20070807
  5. HEPARIN [Concomitant]
     Dosage: UNK
     Dates: start: 20070807, end: 20070807
  6. NITROGLYCERIN [Concomitant]
     Dosage: 20 UNK, UNK
     Route: 042
     Dates: start: 20070807, end: 20070807
  7. ETOMIDATE [Concomitant]
     Dosage: 15 MG, UNK
     Route: 042
     Dates: start: 20070807, end: 20070807
  8. DILTIAZEM [Concomitant]
     Dosage: 30 MG, TID
     Route: 048
  9. ALBUMIN (HUMAN) [Concomitant]
     Dosage: UNK
     Dates: start: 20070807, end: 20070807
  10. TRASYLOL [Suspect]
     Indication: CORONARY ARTERY BYPASS
     Route: 042
     Dates: start: 20070806
  11. PLAVIX [Concomitant]
     Dosage: 75 MG, QD
     Route: 048
  12. ANCEF [Concomitant]
     Dosage: 1 MG, UNK
     Route: 042
     Dates: start: 20070807, end: 20070807
  13. MAGNESIUM [Concomitant]
     Dosage: 2 G, UNK
     Dates: start: 20070807, end: 20070807
  14. RED BLOOD CELLS [Concomitant]
     Dosage: 2 U, UNK
     Route: 042
     Dates: start: 20070807, end: 20070807
  15. DIAZEPAM [Concomitant]
  16. PANCURONIUM BROMIDE [Concomitant]
     Dosage: 4 MG, UNK
     Route: 042
     Dates: start: 20070807, end: 20070807
  17. CARDIOPLEGIA [Concomitant]
     Dosage: UNK
     Dates: start: 20070807, end: 20070807
  18. PROTAMINE SULFATE [Concomitant]
     Dosage: UNK
     Dates: start: 20070807, end: 20070807
  19. METOPROLOL [Concomitant]
     Dosage: 50 MG, BID
     Route: 048

REACTIONS (10)
  - STRESS [None]
  - RENAL FAILURE [None]
  - RENAL IMPAIRMENT [None]
  - PAIN [None]
  - UNEVALUABLE EVENT [None]
  - DEATH [None]
  - EMOTIONAL DISTRESS [None]
  - FEAR [None]
  - RENAL INJURY [None]
  - ANXIETY [None]
